FAERS Safety Report 11174108 (Version 2)
Quarter: 2015Q3

REPORT INFORMATION
  Report Type: Spontaneous
  Country: FR (occurrence: FR)
  Receive Date: 20150609
  Receipt Date: 20150724
  Transmission Date: 20151125
  Serious: Yes (Death)
  Sender: FDA-Public Use
  Company Number: FR-PFIZER INC-2015189622

PATIENT
  Age: 95 Year
  Sex: Female

DRUGS (10)
  1. NORSET [Suspect]
     Active Substance: MIRTAZAPINE
     Dosage: 30 MG, DAILY
     Route: 048
     Dates: start: 20150228, end: 20150228
  2. DOLIPRANE [Suspect]
     Active Substance: ACETAMINOPHEN
     Dosage: 500 MG, EVERY 4 HRS
     Route: 048
     Dates: end: 20150228
  3. KARDEGIC [Suspect]
     Active Substance: ASPIRIN LYSINE
     Indication: ATRIAL FIBRILLATION
     Dosage: 75 MG, DAILY
     Route: 048
     Dates: end: 20150228
  4. LORAZEPAM. [Suspect]
     Active Substance: LORAZEPAM
     Indication: ANXIETY
     Dosage: 2 DF, DAILY
     Route: 048
     Dates: end: 20150228
  5. VENLAFAXINE HCL [Suspect]
     Active Substance: VENLAFAXINE HYDROCHLORIDE
     Indication: DEPRESSION
     Dosage: 37.5 MG, 2X/DAY
     Route: 048
     Dates: end: 20150228
  6. ODRIK [Suspect]
     Active Substance: TRANDOLAPRIL
     Indication: HYPERTENSION
     Dosage: 4 MG, DAILY
     Route: 048
     Dates: end: 20150228
  7. FUMAFER [Suspect]
     Active Substance: FERROUS FUMARATE
     Dosage: 3 DF, DAILY
     Route: 048
     Dates: end: 20150220
  8. CORDARONE [Suspect]
     Active Substance: AMIODARONE HYDROCHLORIDE
     Indication: ATRIAL FIBRILLATION
     Dosage: 200 MG, DAILY
     Route: 048
     Dates: end: 20150228
  9. MODOPAR [Suspect]
     Active Substance: BENSERAZIDE HYDROCHLORIDE\LEVODOPA
     Indication: PARKINSONISM
     Dosage: 62.5 MG, 3X/DAY
     Route: 048
     Dates: end: 20150228
  10. TRANSIPEG /01618701/ [Concomitant]
     Active Substance: POLYETHYLENE GLYCOL 3350\POTASSIUM CHLORIDE\SODIUM BICARBONATE\SODIUM CHLORIDE\SODIUM SULFATE ANHYDROUS
     Dosage: UNK

REACTIONS (2)
  - Cerebellar haematoma [Fatal]
  - Drug administration error [Fatal]

NARRATIVE: CASE EVENT DATE: 20150301
